FAERS Safety Report 8773629 (Version 2)
Quarter: 2012Q4

REPORT INFORMATION
  Report Type: 
  Country: BR (occurrence: BR)
  Receive Date: 20120907
  Receipt Date: 20121009
  Transmission Date: 20130627
  Serious: Yes (Other)
  Sender: FDA-Public Use
  Company Number: PHHY2012BR077345

PATIENT
  Sex: Female

DRUGS (2)
  1. TEGRETOL [Suspect]
     Indication: TRIGEMINAL NEURALGIA
     Dosage: 1 DF, every twelve hours
     Route: 048
  2. TEGRETOL [Suspect]
     Dosage: 3 DF, Daily
     Route: 048
     Dates: start: 201203

REACTIONS (6)
  - VIIth nerve paralysis [Not Recovered/Not Resolved]
  - Facial pain [Not Recovered/Not Resolved]
  - Paraesthesia [Unknown]
  - Speech disorder [Not Recovered/Not Resolved]
  - Pain in extremity [Unknown]
  - Trigeminal neuralgia [Unknown]
